FAERS Safety Report 8338430-8 (Version None)
Quarter: 2012Q2

REPORT INFORMATION
  Report Type: 
  Country: None (occurrence: None)
  Receive Date: 20120504
  Receipt Date: 20120424
  Transmission Date: 20120825
  Serious: Yes (Death, Other)
  Sender: FDA-Public Use
  Company Number: GR-CELGENEUS-066-50794-12042670

PATIENT
  Age: 55 Year
  Sex: Male

DRUGS (1)
  1. VIDAZA [Suspect]
     Dosage: 75 MILLIGRAM/SQ. METER
     Route: 065

REACTIONS (4)
  - RESPIRATORY FAILURE [None]
  - CONSTIPATION [None]
  - SEPSIS [None]
  - SARCOIDOSIS [None]
